FAERS Safety Report 18619187 (Version 3)
Quarter: 2021Q1

REPORT INFORMATION
  Report Type: Spontaneous
  Country: US (occurrence: US)
  Receive Date: 20201215
  Receipt Date: 20210219
  Transmission Date: 20210419
  Serious: No
  Sender: FDA-Public Use
  Company Number: US-TAKEDA-2020TUS052498

PATIENT
  Sex: Female
  Weight: 61.22 kg

DRUGS (14)
  1. LMX [Concomitant]
  2. PREDNISONE. [Concomitant]
     Active Substance: PREDNISONE
  3. PRILOSEC [Concomitant]
     Active Substance: OMEPRAZOLE MAGNESIUM
  4. ACETAMINOPHEN. [Concomitant]
     Active Substance: ACETAMINOPHEN
  5. MONTELUKAST SODIUM. [Concomitant]
     Active Substance: MONTELUKAST SODIUM
  6. CLOBETASOL [Concomitant]
     Active Substance: CLOBETASOL
  7. CUVITRU [Suspect]
     Active Substance: HUMAN IMMUNOGLOBULIN G
     Indication: IMMUNE SYSTEM DISORDER
     Dosage: 9 GRAM, 1/WEEK
     Route: 058
     Dates: start: 20200313
  8. TEMOVATE [Concomitant]
     Active Substance: CLOBETASOL PROPIONATE
  9. DIPHENHYDRAMINE. [Concomitant]
     Active Substance: DIPHENHYDRAMINE
  10. EPINEPHRINE. [Concomitant]
     Active Substance: EPINEPHRINE
  11. STELARA [Concomitant]
     Active Substance: USTEKINUMAB
  12. MONTELUKAST [Concomitant]
     Active Substance: MONTELUKAST SODIUM
  13. IBUPROFEN. [Concomitant]
     Active Substance: IBUPROFEN
  14. ADVIL [Concomitant]
     Active Substance: IBUPROFEN

REACTIONS (2)
  - Influenza [Unknown]
  - Urinary tract infection [Unknown]
